FAERS Safety Report 26028434 (Version 1)
Quarter: 2025Q4

REPORT INFORMATION
  Report Type: Spontaneous
  Country: US (occurrence: US)
  Receive Date: 20251111
  Receipt Date: 20251111
  Transmission Date: 20260117
  Serious: Yes (Hospitalization, Other)
  Sender: NOVO NORDISK
  Company Number: US-NOVOPROD-1557351

PATIENT
  Age: 68 Year
  Sex: Female

DRUGS (2)
  1. VICTOZA [Suspect]
     Active Substance: LIRAGLUTIDE
     Dosage: 1.8 MG, QD
     Route: 058
  2. VICTOZA [Suspect]
     Active Substance: LIRAGLUTIDE
     Indication: Type 2 diabetes mellitus
     Dosage: UNK

REACTIONS (6)
  - Spinal operation [Not Recovered/Not Resolved]
  - Aortic aneurysm repair [Recovered/Resolved]
  - Shoulder arthroplasty [Recovered/Resolved]
  - Nerve injury [Not Recovered/Not Resolved]
  - Eye disorder [Unknown]
  - Wheelchair user [Unknown]

NARRATIVE: CASE EVENT DATE: 20170101
